FAERS Safety Report 11639092 (Version 6)
Quarter: 2016Q1

REPORT INFORMATION
  Report Type: Report from Study
  Country: US (occurrence: US)
  Receive Date: 20151019
  Receipt Date: 20160113
  Transmission Date: 20160525
  Serious: Yes (Death, Hospitalization, Other)
  Sender: FDA-Public Use
  Company Number: US-ALEXION PHARMACEUTICALS INC-A201503985

PATIENT
  Sex: Male

DRUGS (1)
  1. SOLIRIS [Suspect]
     Active Substance: ECULIZUMAB
     Indication: HAEMOLYTIC URAEMIC SYNDROME
     Dosage: 900 MG, QW
     Route: 042

REACTIONS (8)
  - Clostridium difficile infection [Unknown]
  - Blood albumin decreased [Unknown]
  - Musculoskeletal pain [Unknown]
  - Pyrexia [Unknown]
  - Sepsis [Not Recovered/Not Resolved]
  - Death [Fatal]
  - Malaise [Not Recovered/Not Resolved]
  - Eye discharge [Unknown]

NARRATIVE: CASE EVENT DATE: 20151009
